FAERS Safety Report 21042732 (Version 4)
Quarter: 2022Q4

REPORT INFORMATION
  Report Type: Spontaneous
  Country: US (occurrence: US)
  Receive Date: 20220705
  Receipt Date: 20221015
  Transmission Date: 20230113
  Serious: Yes (Hospitalization, Other)
  Sender: FDA-Public Use
  Company Number: US-UNITED THERAPEUTICS-UNT-2022-014201

PATIENT
  Sex: Female

DRUGS (5)
  1. TYVASO [Suspect]
     Active Substance: TREPROSTINIL
     Indication: Pulmonary arterial hypertension
     Dosage: UNK
     Dates: start: 20210501
  2. TYVASO [Suspect]
     Active Substance: TREPROSTINIL
     Dosage: 18 ?G, QID
  3. TYVASO [Suspect]
     Active Substance: TREPROSTINIL
     Dosage: 66 ?G, QID
  4. GAMMAGARD [Suspect]
     Active Substance: HUMAN IMMUNOGLOBULIN G
     Indication: Product used for unknown indication
     Dosage: UNK
     Route: 058
  5. ADEMPAS [Concomitant]
     Active Substance: RIOCIGUAT
     Indication: Pulmonary arterial hypertension
     Dosage: UNK
     Route: 065

REACTIONS (16)
  - Angioedema [Unknown]
  - Impaired gastric emptying [Unknown]
  - Rectal haemorrhage [Unknown]
  - Cough [Unknown]
  - Injection site pain [Unknown]
  - Scar [Unknown]
  - Chronic gastritis [Unknown]
  - Infection [Unknown]
  - Dyspnoea [Unknown]
  - Nausea [Unknown]
  - Vomiting [Unknown]
  - Pain [Unknown]
  - Peripheral swelling [Unknown]
  - Joint swelling [Unknown]
  - Pharyngeal swelling [Not Recovered/Not Resolved]
  - Tendon rupture [Unknown]

NARRATIVE: CASE EVENT DATE: 20220101
